APPROVED DRUG PRODUCT: ICOSAPENT ETHYL
Active Ingredient: ICOSAPENT ETHYL
Strength: 1GM
Dosage Form/Route: CAPSULE;ORAL
Application: A218899 | Product #001 | TE Code: AB
Applicant: QILU PHARMACEUTICAL CO LTD
Approved: Nov 20, 2024 | RLD: No | RS: No | Type: RX